FAERS Safety Report 10629837 (Version 1)
Quarter: 2014Q4

REPORT INFORMATION
  Report Type: Spontaneous
  Country: US (occurrence: US)
  Receive Date: 20141205
  Receipt Date: 20141205
  Transmission Date: 20150529
  Serious: No
  Sender: FDA-Public Use
  Company Number: US-BRISTOL-MYERS SQUIBB COMPANY-20805826

PATIENT
  Age: 69 Year
  Sex: Female
  Weight: 99.32 kg

DRUGS (16)
  1. LIPITOR [Concomitant]
     Active Substance: ATORVASTATIN CALCIUM
  2. SINGULAIR [Concomitant]
     Active Substance: MONTELUKAST SODIUM
  3. ATARAX [Concomitant]
     Active Substance: HYDROXYZINE\HYDROXYZINE HYDROCHLORIDE
     Indication: HYPERSENSITIVITY
  4. VENTOLIN [Concomitant]
     Active Substance: ALBUTEROL SULFATE
  5. BUSPAR [Concomitant]
     Active Substance: BUSPIRONE HYDROCHLORIDE
     Indication: ANXIETY
  6. AMITRIPTYLINE [Concomitant]
     Active Substance: AMITRIPTYLINE
  7. NASONEX [Concomitant]
     Active Substance: MOMETASONE FUROATE
  8. BYETTA [Suspect]
     Active Substance: EXENATIDE
  9. HUMALOG [Concomitant]
     Active Substance: INSULIN LISPRO
  10. LISINOPRIL. [Concomitant]
     Active Substance: LISINOPRIL
  11. CARVEDILOL. [Concomitant]
     Active Substance: CARVEDILOL
  12. LASIX [Concomitant]
     Active Substance: FUROSEMIDE
     Indication: FLUID RETENTION
  13. PATANOL [Concomitant]
     Active Substance: OLOPATADINE HYDROCHLORIDE
     Dosage: EYE DROPS
     Route: 047
  14. LANTUS [Concomitant]
     Active Substance: INSULIN GLARGINE
  15. ASPIRIN. [Concomitant]
     Active Substance: ASPIRIN
  16. CELEBREX [Concomitant]
     Active Substance: CELECOXIB

REACTIONS (1)
  - Weight decreased [Unknown]
